FAERS Safety Report 24005759 (Version 1)
Quarter: 2024Q2

REPORT INFORMATION
  Report Type: Spontaneous
  Country: US (occurrence: None)
  Receive Date: 20240623
  Receipt Date: 20240623
  Transmission Date: 20240716
  Serious: Yes (Other)
  Sender: FDA-Public Use
  Company Number: None

PATIENT
  Age: 28 Year
  Sex: Female
  Weight: 82.35 kg

DRUGS (2)
  1. LIDOCAINE 4% [Suspect]
     Active Substance: LIDOCAINE
     Indication: Product used for unknown indication
     Dates: start: 20240524
  2. TRAZODONE [Concomitant]
     Active Substance: TRAZODONE HYDROCHLORIDE

REACTIONS (2)
  - Pain in extremity [None]
  - Product use issue [None]

NARRATIVE: CASE EVENT DATE: 20240620
